FAERS Safety Report 6108656-2 (Version None)
Quarter: 2009Q1

REPORT INFORMATION
  Report Type: 
  Country: None (occurrence: None)
  Receive Date: 20090305
  Receipt Date: 20090224
  Transmission Date: 20090719
  Serious: Yes (Death, Hospitalization)
  Sender: FDA-Public Use
  Company Number: A-CH2009-24029

PATIENT
  Age: 66 Year
  Sex: Male
  Weight: 61 kg

DRUGS (7)
  1. TRACLEER [Suspect]
     Indication: PULMONARY HYPERTENSION
     Dosage: 125 MG, BID, ORAL; 82.5 MG, BID, ORAL
     Route: 048
     Dates: start: 20080710, end: 20080807
  2. TRACLEER [Suspect]
     Indication: PULMONARY HYPERTENSION
     Dosage: 125 MG, BID, ORAL; 82.5 MG, BID, ORAL
     Route: 048
     Dates: start: 20080808, end: 20080929
  3. ACETYLCYSTEINE [Concomitant]
  4. TELMISARTAN [Concomitant]
  5. ATORVASTATIN CALCIUM [Concomitant]
  6. ACETYLSALICYLIC ACID SRT [Concomitant]
  7. SALMETEROL/FLUTICASONPROPIONAAT [Concomitant]

REACTIONS (2)
  - PNEUMONIA PNEUMOCOCCAL [None]
  - SEPTIC SHOCK [None]
